FAERS Safety Report 16982274 (Version 1)
Quarter: 2019Q4

REPORT INFORMATION
  Report Type: Spontaneous
  Country: FR (occurrence: FR)
  Receive Date: 20191101
  Receipt Date: 20191101
  Transmission Date: 20200122
  Serious: Yes (Hospitalization)
  Sender: FDA-Public Use
  Company Number: FR-ACCORD-159378

PATIENT
  Age: 17 Year
  Sex: Female
  Weight: 30 kg

DRUGS (12)
  1. GANCICLOVIR. [Interacting]
     Active Substance: GANCICLOVIR
     Indication: CYTOMEGALOVIRUS VIRAEMIA
     Route: 042
     Dates: start: 20190503, end: 20190515
  2. LANSOPRAZOLE. [Concomitant]
     Active Substance: LANSOPRAZOLE
     Route: 048
  3. LORAZEPAM. [Concomitant]
     Active Substance: LORAZEPAM
     Route: 048
     Dates: start: 20190416, end: 20190518
  4. AMIODARONE [Concomitant]
     Active Substance: AMIODARONE
     Route: 048
     Dates: start: 20190331
  5. VALGANCICLOVIR/VALGANCICLOVIR HYDROCHLORIDE [Interacting]
     Active Substance: VALGANCICLOVIR
     Indication: ANTIVIRAL PROPHYLAXIS
     Route: 048
     Dates: start: 20190308, end: 20190902
  6. KARDEGIC [Concomitant]
     Active Substance: ASPIRIN DL-LYSINE
     Dosage: STRENGTH: 75 MG POWDER FOR ORAL SOLUTION IN SACHET-DOSE
     Route: 048
     Dates: start: 20190401, end: 20190725
  7. MYCOPHENOLIC ACID. [Suspect]
     Active Substance: MYCOPHENOLIC ACID
     Indication: PRODUCT USED FOR UNKNOWN INDICATION
     Route: 048
     Dates: start: 20190308
  8. PREDNISONE. [Concomitant]
     Active Substance: PREDNISONE
     Route: 048
     Dates: start: 20190311, end: 20190730
  9. CLOPIDOGREL [Concomitant]
     Active Substance: CLOPIDOGREL BISULFATE
     Route: 048
     Dates: start: 20190401, end: 20190612
  10. VORICONAZOLE. [Concomitant]
     Active Substance: VORICONAZOLE
     Route: 042
     Dates: start: 20190401, end: 20190523
  11. TACROLIMUS. [Concomitant]
     Active Substance: TACROLIMUS
     Route: 048
     Dates: start: 20190308
  12. TARDYFERON [Concomitant]
     Active Substance: FERROUS SULFATE
     Dosage: STRENGTH: 80 MG, COATED TABLET
     Route: 048
     Dates: start: 20190427, end: 20190502

REACTIONS (2)
  - Agranulocytosis [Recovered/Resolved]
  - Drug interaction [Unknown]

NARRATIVE: CASE EVENT DATE: 20190506
